FAERS Safety Report 5006563-X (Version None)
Quarter: 2006Q2

REPORT INFORMATION
  Report Type: 
  Country: None (occurrence: None)
  Receive Date: 20060519
  Receipt Date: 20060410
  Transmission Date: 20061013
  Serious: Yes (Death, Life-Threatening, Hospitalization, Disabling, Other)
  Sender: FDA-Public Use
  Company Number: 2006PK00701

PATIENT
  Age: 954 Month
  Sex: Male
  Weight: 82 kg

DRUGS (3)
  1. IRESSA [Suspect]
     Indication: TRANSITIONAL CELL CARCINOMA
     Dates: start: 20060206
  2. GEMCITABINE [Suspect]
     Indication: TRANSITIONAL CELL CARCINOMA
     Dosage: CYCLE 6
     Route: 042
     Dates: start: 20050829
  3. CISPLATIN [Suspect]
     Indication: TRANSITIONAL CELL CARCINOMA
     Dosage: CYCLE 6
     Route: 042
     Dates: start: 20050829

REACTIONS (2)
  - HEPATIC FAILURE [None]
  - NAUSEA [None]
